FAERS Safety Report 6939372-2 (Version None)
Quarter: 2010Q3

REPORT INFORMATION
  Report Type: 
  Country: None (occurrence: None)
  Receive Date: 20100824
  Receipt Date: 20100816
  Transmission Date: 20110219
  Serious: Yes (Other)
  Sender: FDA-Public Use
  Company Number: US-AMGEN-QUU431883

PATIENT
  Sex: Female

DRUGS (2)
  1. ENBREL [Suspect]
     Indication: PSORIASIS
     Route: 058
     Dates: start: 20090807, end: 20100701
  2. ENBREL [Suspect]
     Indication: PSORIATIC ARTHROPATHY

REACTIONS (9)
  - ASTHENIA [None]
  - DERMATITIS [None]
  - DIZZINESS [None]
  - EXOSTOSIS [None]
  - JOINT LOCK [None]
  - JOINT RANGE OF MOTION DECREASED [None]
  - LOSS OF CONSCIOUSNESS [None]
  - PAIN IN EXTREMITY [None]
  - WALKING AID USER [None]
